FAERS Safety Report 11120418 (Version 1)
Quarter: 2015Q2

REPORT INFORMATION
  Report Type: Spontaneous
  Country: FR (occurrence: FR)
  Receive Date: 20150518
  Receipt Date: 20150518
  Transmission Date: 20150821
  Serious: Yes (Hospitalization)
  Sender: FDA-Public Use
  Company Number: PHHY2015FR056538

PATIENT

DRUGS (3)
  1. ESOMEPRAZOLE [Concomitant]
     Active Substance: ESOMEPRAZOLE
     Indication: POSTOPERATIVE CARE
     Dosage: 20 MG, QD
     Route: 065
  2. TACROLIMUS. [Suspect]
     Active Substance: TACROLIMUS
     Indication: IMMUNOSUPPRESSION
     Dosage: 6 MG, BID
     Route: 065
  3. PREDNISOLONE. [Concomitant]
     Active Substance: PREDNISOLONE
     Indication: POSTOPERATIVE CARE
     Dosage: 20 MG, QD
     Route: 065

REACTIONS (8)
  - Blindness [Recovering/Resolving]
  - Eye disorder [Unknown]
  - Haemorrhage [Recovering/Resolving]
  - Vasodilatation [Recovering/Resolving]
  - Visual acuity reduced [Recovering/Resolving]
  - Swelling [Unknown]
  - Retinal vein occlusion [Recovered/Resolved]
  - Papilloedema [Recovered/Resolved]
